FAERS Safety Report 22590532 (Version 1)
Quarter: 2023Q2

REPORT INFORMATION
  Report Type: Spontaneous
  Country: US (occurrence: None)
  Receive Date: 20230610
  Receipt Date: 20230610
  Transmission Date: 20230721
  Serious: Yes (Other)
  Sender: FDA-Public Use
  Company Number: None

PATIENT
  Age: 76 Year
  Sex: Female
  Weight: 42.75 kg

DRUGS (9)
  1. BACTRIM [Suspect]
     Active Substance: SULFAMETHOXAZOLE\TRIMETHOPRIM
     Indication: Stenotrophomonas infection
     Dates: start: 20230525, end: 20230608
  2. MINOCYCLINE [Concomitant]
     Active Substance: MINOCYCLINE HYDROCHLORIDE
  3. MEROPENEM [Concomitant]
     Active Substance: MEROPENEM
  4. LINEZOLID [Concomitant]
     Active Substance: LINEZOLID
  5. ACYCLOVIR [Concomitant]
     Active Substance: ACYCLOVIR
  6. MICAFUNGIN [Concomitant]
     Active Substance: MICAFUNGIN SODIUM
  7. LOSARTAN [Concomitant]
     Active Substance: LOSARTAN
  8. IMDUR [Concomitant]
     Active Substance: ISOSORBIDE MONONITRATE
  9. CARVEDILOL [Concomitant]
     Active Substance: CARVEDILOL

REACTIONS (3)
  - Swelling [None]
  - Weight increased [None]
  - Skin tightness [None]

NARRATIVE: CASE EVENT DATE: 20230531
